FAERS Safety Report 15090950 (Version 1)
Quarter: 2018Q2

REPORT INFORMATION
  Report Type: Spontaneous
  Country: US (occurrence: US)
  Receive Date: 20180629
  Receipt Date: 20180629
  Transmission Date: 20180711
  Serious: No
  Sender: FDA-Public Use
  Company Number: US-BAYER-2018-118741

PATIENT
  Age: 62 Year
  Sex: Male
  Weight: 85 kg

DRUGS (2)
  1. MIRALAX [Suspect]
     Active Substance: POLYETHYLENE GLYCOL 3350
     Indication: GASTROINTESTINAL DISORDER
     Dosage: 17 G, UNK
     Route: 048
     Dates: start: 20180611, end: 20180618
  2. STOOL SOFTENER (DOCUSATE) [Concomitant]
     Active Substance: DOCUSATE

REACTIONS (8)
  - Glossitis [Not Recovered/Not Resolved]
  - Incorrect drug administration duration [Unknown]
  - Hypoaesthesia oral [Not Recovered/Not Resolved]
  - Tongue discolouration [Not Recovered/Not Resolved]
  - Incorrect dose administered [Unknown]
  - Drug ineffective [Unknown]
  - Oral candidiasis [Not Recovered/Not Resolved]
  - Tongue erythema [Not Recovered/Not Resolved]

NARRATIVE: CASE EVENT DATE: 20180611
